FAERS Safety Report 6603046-8 (Version None)
Quarter: 2010Q1

REPORT INFORMATION
  Report Type: 
  Country: None (occurrence: None)
  Receive Date: 20100226
  Receipt Date: 20100219
  Transmission Date: 20100710
  Serious: Yes (Life-Threatening, Hospitalization, Other)
  Sender: FDA-Public Use
  Company Number: SK-ELI_LILLY_AND_COMPANY-SK201002006926

PATIENT
  Sex: Male

DRUGS (9)
  1. GEMCITABINE HCL [Suspect]
     Indication: NON-SMALL CELL LUNG CANCER
     Dosage: 1250 MG/M2, OTHER
     Route: 042
     Dates: start: 20090219, end: 20090226
  2. CETUXIMAB [Suspect]
     Indication: NON-SMALL CELL LUNG CANCER
     Dosage: 250 MG/M2, OTHER
     Route: 042
     Dates: start: 20090219
  3. CISPLATIN [Suspect]
     Indication: NON-SMALL CELL LUNG CANCER
     Dosage: 75 MG/M2, OTHER
     Route: 042
     Dates: start: 20090219, end: 20090219
  4. THIOCTIC ACID [Concomitant]
     Dosage: 600 MG, UNK
     Route: 048
     Dates: start: 20071201
  5. METFORMIN HCL [Concomitant]
     Dosage: 1700 MG, UNK
     Route: 048
     Dates: start: 20071201
  6. SIMVASTATIN [Concomitant]
     Dosage: 40 MG, UNK
     Route: 048
     Dates: start: 20071220
  7. ACETYLSALICYLIC ACID [Concomitant]
     Dosage: 100 MG, UNK
     Dates: start: 20030201
  8. BISOPROLOL FUMARATE [Concomitant]
     Dosage: 5 MG, UNK
     Route: 048
     Dates: start: 20070601
  9. ETAMSILATE [Concomitant]
     Route: 048
     Dates: start: 20090227

REACTIONS (3)
  - BRONCHITIS [None]
  - LEUKOPENIA [None]
  - NEUTROPENIA [None]
